FAERS Safety Report 5838823-4 (Version None)
Quarter: 2008Q3

REPORT INFORMATION
  Report Type: 
  Country: None (occurrence: None)
  Receive Date: 20080808
  Receipt Date: 20080731
  Transmission Date: 20090109
  Serious: Yes (Other)
  Sender: FDA-Public Use
  Company Number: US-WYE-H05324808

PATIENT
  Sex: Female

DRUGS (2)
  1. EFFEXOR XR [Suspect]
     Indication: DEPRESSION
     Route: 048
  2. EFFEXOR XR [Suspect]
     Dosage: { 225 MG/DAY
     Route: 048

REACTIONS (3)
  - FEAR [None]
  - INTENTIONAL DRUG MISUSE [None]
  - SUICIDAL IDEATION [None]
